FAERS Safety Report 19861006 (Version 1)
Quarter: 2021Q3

REPORT INFORMATION
  Report Type: Spontaneous
  Country: US (occurrence: US)
  Receive Date: 20210920
  Receipt Date: 20210920
  Transmission Date: 20211014
  Serious: Yes (Hospitalization)
  Sender: FDA-Public Use
  Company Number: None

PATIENT
  Sex: Female

DRUGS (8)
  1. PIQRAY [Suspect]
     Active Substance: ALPELISIB
     Indication: BREAST CANCER
     Route: 048
     Dates: start: 20210717
  2. FASLODEX [Concomitant]
     Active Substance: FULVESTRANT
  3. CARVEDILOL. [Concomitant]
     Active Substance: CARVEDILOL
  4. XGEVA [Concomitant]
     Active Substance: DENOSUMAB
  5. LIPITOR [Concomitant]
     Active Substance: ATORVASTATIN CALCIUM
  6. CYANOCOBALAMIN. [Concomitant]
     Active Substance: CYANOCOBALAMIN
  7. CALCIUM +D3 [Concomitant]
     Active Substance: CALCIUM\CHOLECALCIFEROL
  8. FAMOTIDIN [Concomitant]
     Active Substance: FAMOTIDINE

REACTIONS (1)
  - Renal disorder [None]
